FAERS Safety Report 4984578-5 (Version None)
Quarter: 2006Q2

REPORT INFORMATION
  Report Type: 
  Country: None (occurrence: None)
  Receive Date: 20060420
  Receipt Date: 20060410
  Transmission Date: 20061013
  Serious: Yes (Hospitalization)
  Sender: FDA-Public Use
  Company Number: 2006-141107-NL

PATIENT
  Age: 66 Year
  Sex: Female

DRUGS (3)
  1. MIRTAZAPINE [Suspect]
     Indication: DEPRESSION
     Dosage: 30 MG ORAL
     Route: 048
     Dates: end: 20050930
  2. MORPHINE [Concomitant]
  3. MADOPAR [Concomitant]

REACTIONS (4)
  - AGITATION [None]
  - GRAND MAL CONVULSION [None]
  - HYPERTHERMIA [None]
  - SEROTONIN SYNDROME [None]
